FAERS Safety Report 22699431 (Version 12)
Quarter: 2024Q2

REPORT INFORMATION
  Report Type: Spontaneous
  Country: CA (occurrence: CA)
  Receive Date: 20230713
  Receipt Date: 20240626
  Transmission Date: 20240716
  Serious: Yes (Life-Threatening, Hospitalization, Other)
  Sender: FDA-Public Use
  Company Number: CA-CELLTRION INC.-2023CA004920

PATIENT

DRUGS (10)
  1. INFLECTRA [Suspect]
     Active Substance: INFLIXIMAB-DYYB
     Indication: Hidradenitis
     Dosage: 300 MG, EVERY 8 WEEKS
     Route: 042
     Dates: start: 20230407
  2. INFLECTRA [Suspect]
     Active Substance: INFLIXIMAB-DYYB
     Indication: Pyoderma gangrenosum
     Dosage: 300 MG, EVERY 8 WEEKS
     Route: 042
     Dates: start: 20230427
  3. INFLECTRA [Suspect]
     Active Substance: INFLIXIMAB-DYYB
     Dosage: 300 MG, EVERY 4 WEEKS
     Route: 042
     Dates: start: 20230518
  4. INFLECTRA [Suspect]
     Active Substance: INFLIXIMAB-DYYB
     Dosage: 300 MG, AFTER 8 WEEKS
     Route: 042
     Dates: start: 20230713
  5. INFLECTRA [Suspect]
     Active Substance: INFLIXIMAB-DYYB
     Dosage: 300 MG, AFTER 34 WEEKS AND 4 DAYS (WEEK 0 REINDUCTION DOSE)
     Route: 042
     Dates: start: 20240416
  6. INFLECTRA [Suspect]
     Active Substance: INFLIXIMAB-DYYB
     Dosage: 300 MG, AFTER 2 WEEKS AND 1 DAY
     Route: 042
     Dates: start: 20240501
  7. ACETAMINOPHEN [Concomitant]
     Active Substance: ACETAMINOPHEN
     Indication: Premedication
     Dosage: 650 MG
     Dates: start: 20240501, end: 20240501
  8. DIPHENHYDRAMINE [Concomitant]
     Active Substance: DIPHENHYDRAMINE
     Indication: Premedication
     Dosage: 50 MG
     Dates: start: 20240501, end: 20240501
  9. HYDROCORTISONE [Concomitant]
     Active Substance: HYDROCORTISONE\HYDROCORTISONE ACETATE
     Indication: Premedication
     Dosage: 100 MG
     Dates: start: 20240501, end: 20240501
  10. PREDNISONE [Concomitant]
     Active Substance: PREDNISONE
     Dosage: 1 DF

REACTIONS (7)
  - Condition aggravated [Unknown]
  - Hepatitis B [Unknown]
  - Infection [Not Recovered/Not Resolved]
  - Aplastic anaemia [Unknown]
  - Pyrexia [Unknown]
  - Tachycardia [Recovered/Resolved]
  - Off label use [Unknown]

NARRATIVE: CASE EVENT DATE: 20230101
